FAERS Safety Report 6305219-0 (Version None)
Quarter: 2009Q3

REPORT INFORMATION
  Report Type: 
  Country: None (occurrence: None)
  Receive Date: 20090811
  Receipt Date: 20090803
  Transmission Date: 20100115
  Serious: Yes (Life-Threatening)
  Sender: FDA-Public Use
  Company Number: AT-AVENTIS-200914584EU

PATIENT
  Age: 83 Year
  Sex: Female
  Weight: 60 kg

DRUGS (7)
  1. LASIX [Suspect]
     Route: 048
  2. FRAXIPARIN                         /01437702/ [Suspect]
     Indication: PROPHYLAXIS
     Dosage: DOSE: UNK
     Route: 058
  3. DANCOR [Concomitant]
     Dosage: DOSE: 1 DF
  4. DOMINAL [Concomitant]
  5. LENDORM [Concomitant]
  6. ASPIRIN [Concomitant]
  7. TROMCARDIN                         /00196901/ [Concomitant]

REACTIONS (3)
  - HYPONATRAEMIA [None]
  - INTRA-ABDOMINAL HAEMORRHAGE [None]
  - RETROPERITONEAL HAEMORRHAGE [None]
